FAERS Safety Report 13852804 (Version 1)
Quarter: 2017Q3

REPORT INFORMATION
  Report Type: Spontaneous
  Country: US (occurrence: US)
  Receive Date: 20170810
  Receipt Date: 20170810
  Transmission Date: 20171127
  Serious: Yes (Other)
  Sender: FDA-Public Use
  Company Number: US-TEVA-794904ACC

PATIENT
  Age: 68 Year
  Sex: Female

DRUGS (2)
  1. CALCITONIN [Concomitant]
     Active Substance: CALCITONIN
  2. COPAXONE [Suspect]
     Active Substance: GLATIRAMER ACETATE
     Indication: MULTIPLE SCLEROSIS
     Route: 058
     Dates: start: 20170621

REACTIONS (1)
  - Dyspnoea [Unknown]
